FAERS Safety Report 25596726 (Version 6)
Quarter: 2025Q3

REPORT INFORMATION
  Report Type: Report from Study
  Country: US (occurrence: US)
  Receive Date: 20250723
  Receipt Date: 20250930
  Transmission Date: 20251020
  Serious: Yes (Other)
  Sender: MALLINCKRODT
  Company Number: US-MALLINCKRODT-MNK202504139

PATIENT
  Age: 49 Year
  Sex: Female

DRUGS (10)
  1. CORTICOTROPIN [Suspect]
     Active Substance: CORTICOTROPIN
     Indication: Cyclitic membrane
     Route: 058
     Dates: start: 20250626
  2. CORTICOTROPIN [Suspect]
     Active Substance: CORTICOTROPIN
     Dosage: UNKNOWN
     Dates: start: 2025
  3. BOTOX [Concomitant]
     Active Substance: ONABOTULINUMTOXINA
     Indication: Migraine
  4. CORTISONE [Concomitant]
     Active Substance: CORTISONE
     Indication: Migraine
  5. HYDROCHLOROTHIAZIDE [Concomitant]
     Active Substance: HYDROCHLOROTHIAZIDE
  6. AIMOVIG [Concomitant]
     Active Substance: ERENUMAB-AOOE
  7. PREDNISONE [Concomitant]
     Active Substance: PREDNISONE
  8. MOUNJARO [Concomitant]
     Active Substance: TIRZEPATIDE
  9. ACYCLOVIR [Concomitant]
     Active Substance: ACYCLOVIR
  10. ACYCLOVIR [Concomitant]
     Active Substance: ACYCLOVIR

REACTIONS (12)
  - Surgery [Unknown]
  - Pain in extremity [Not Recovered/Not Resolved]
  - Musculoskeletal discomfort [Not Recovered/Not Resolved]
  - Gait disturbance [Unknown]
  - Vascular access site pruritus [Unknown]
  - Injection site swelling [Not Recovered/Not Resolved]
  - Injection site pain [Not Recovered/Not Resolved]
  - Injection site erythema [Not Recovered/Not Resolved]
  - Injection site warmth [Not Recovered/Not Resolved]
  - Injection site pruritus [Not Recovered/Not Resolved]
  - Fatigue [Unknown]
  - Post procedural infection [Not Recovered/Not Resolved]

NARRATIVE: CASE EVENT DATE: 20250101
